FAERS Safety Report 14354725 (Version 1)
Quarter: 2018Q1

REPORT INFORMATION
  Report Type: Spontaneous
  Country: NL (occurrence: NL)
  Receive Date: 20180105
  Receipt Date: 20180105
  Transmission Date: 20180509
  Serious: Yes (Other)
  Sender: FDA-Public Use
  Company Number: NL-APOTEX-2018AP005066

PATIENT
  Age: 76 Year
  Sex: Female

DRUGS (2)
  1. IMATINIB 400 [Suspect]
     Active Substance: IMATINIB
     Indication: GASTROINTESTINAL STROMAL TUMOUR
     Dosage: 400 MG, DAILY
     Route: 065
  2. IMATINIB 400 [Suspect]
     Active Substance: IMATINIB
     Dosage: 400 MG, BID
     Route: 065

REACTIONS (6)
  - Disease progression [Not Recovered/Not Resolved]
  - Gastrointestinal stromal tumour [Not Recovered/Not Resolved]
  - Therapy non-responder [Unknown]
  - Metastases to liver [Unknown]
  - Malignant neoplasm progression [None]
  - Drug resistance [Unknown]
